FAERS Safety Report 24809200 (Version 1)
Quarter: 2025Q1

REPORT INFORMATION
  Report Type: Spontaneous
  Country: US (occurrence: US)
  Receive Date: 20250106
  Receipt Date: 20250106
  Transmission Date: 20250408
  Serious: No
  Sender: STRIDES
  Company Number: US-STRIDES ARCOLAB LIMITED-2024SP009051

PATIENT
  Age: 61 Year
  Sex: Female

DRUGS (7)
  1. ACETAZOLAMIDE [Suspect]
     Active Substance: ACETAZOLAMIDE
     Indication: Hypnic headache
     Route: 065
  2. ACETAZOLAMIDE [Suspect]
     Active Substance: ACETAZOLAMIDE
     Route: 065
  3. ACETAZOLAMIDE [Suspect]
     Active Substance: ACETAZOLAMIDE
     Route: 065
  4. ACETAZOLAMIDE [Suspect]
     Active Substance: ACETAZOLAMIDE
     Route: 065
  5. ACETAZOLAMIDE [Suspect]
     Active Substance: ACETAZOLAMIDE
     Route: 065
  6. INDOMETHACIN [Concomitant]
     Active Substance: INDOMETHACIN
     Indication: Hypnic headache
     Route: 065
  7. ONABOTULINUMTOXINA [Concomitant]
     Active Substance: ONABOTULINUMTOXINA
     Indication: Migraine
     Route: 065

REACTIONS (3)
  - Dyspnoea [Unknown]
  - Paraesthesia [Unknown]
  - Off label use [Unknown]
